FAERS Safety Report 7495656-3 (Version None)
Quarter: 2011Q2

REPORT INFORMATION
  Report Type: 
  Country: None (occurrence: None)
  Receive Date: 20110523
  Receipt Date: 20110505
  Transmission Date: 20111010
  Serious: No
  Sender: FDA-Public Use
  Company Number: US-PFIZER INC-2011108909

PATIENT
  Sex: Female
  Weight: 86.757 kg

DRUGS (19)
  1. POTASSIUM CHLORIDE [Concomitant]
     Dosage: 10 MEQ, PRN
  2. NITROFURANTOIN MONOHYDRATE [Concomitant]
     Dosage: 100 MG, BID
  3. ULORIC [Concomitant]
     Dosage: 80 MG, QD
  4. CARISOPRODOL [Concomitant]
     Dosage: 350 MG, BID
  5. OXYCODONE AND ACETAMINOPHEN [Concomitant]
     Dosage: UNK UNK, PRN
  6. LYRICA [Suspect]
  7. LOSARTAN [Concomitant]
     Dosage: 100 MG, QD
  8. VENTOLIN [Concomitant]
     Dosage: UNK UNK, PRN
  9. SYMBICORT [Concomitant]
     Dosage: UNK
  10. ESTRADIOL [Concomitant]
  11. KETOROLAC TROMETHAMINE [Concomitant]
     Dosage: 30 MG, UNK
  12. FUROSEMIDE [Concomitant]
     Dosage: 20 MG, PRN
  13. MONTELUKAST SODIUM [Concomitant]
     Dosage: 10 MG, QD
  14. LEVOTHYROXINE SODIUM [Concomitant]
     Dosage: 100 A?G, QD
  15. PROMETHAZINE W/ CODEINE [Concomitant]
     Dosage: UNK UNK, PRN
  16. ETANERCEPT [Concomitant]
     Indication: PSORIASIS
     Dosage: 50 MG, 2 TIMES/WK
     Dates: start: 20091028
  17. VITAMIN D [Concomitant]
     Dosage: 5000 UNIT, QWK
  18. MELOXICAM [Concomitant]
     Dosage: 15 MG, QD
  19. PREDNISOLONE [Concomitant]

REACTIONS (1)
  - DRUG HYPERSENSITIVITY [None]
